FAERS Safety Report 12753840 (Version 1)
Quarter: 2016Q3

REPORT INFORMATION
  Report Type: Spontaneous
  Country: US (occurrence: US)
  Receive Date: 20160916
  Receipt Date: 20160916
  Transmission Date: 20161109
  Serious: No
  Sender: FDA-Public Use
  Company Number: US-009507513-1608USA015324

PATIENT
  Age: 69 Year
  Sex: Male

DRUGS (17)
  1. ASHWAGANDHA [Concomitant]
     Active Substance: HERBALS
  2. ASPIRIN. [Concomitant]
     Active Substance: ASPIRIN
     Route: 048
  3. FUROSEMIDE. [Concomitant]
     Active Substance: FUROSEMIDE
     Route: 048
  4. OMEGA (OMEPRAZOLE) [Concomitant]
     Active Substance: OMEPRAZOLE
  5. ZEPATIER [Suspect]
     Active Substance: ELBASVIR\GRAZOPREVIR
     Indication: HEPATITIS C
     Dosage: ONE TABLET ONCE PER DAY
     Route: 048
     Dates: start: 201607
  6. AMLODIPINE [Concomitant]
     Active Substance: AMLODIPINE BESYLATE
  7. METOLAZONE. [Concomitant]
     Active Substance: METOLAZONE
  8. RIBOSE [Concomitant]
     Active Substance: DIETARY SUPPLEMENT
  9. CORDYMAX [Concomitant]
  10. LANTUS [Concomitant]
     Active Substance: INSULIN GLARGINE
  11. SELENIUM (UNSPECIFIED) [Concomitant]
     Active Substance: SELENIUM
  12. GOTU KOLA [Concomitant]
     Active Substance: GOTU KOLA
  13. ACETYLCYSTEINE. [Concomitant]
     Active Substance: ACETYLCYSTEINE
     Route: 048
  14. MAGNESIUM (UNSPECIFIED) [Concomitant]
     Active Substance: MAGNESIUM
  15. R-LIPOIC ACID [Concomitant]
  16. HUMULIN NOS [Concomitant]
     Active Substance: INSULIN HUMAN
  17. VITAMIN E [Concomitant]
     Active Substance: .ALPHA.-TOCOPHEROL

REACTIONS (2)
  - Vomiting [Unknown]
  - Diarrhoea [Unknown]

NARRATIVE: CASE EVENT DATE: 201608
